FAERS Safety Report 22144098 (Version 1)
Quarter: 2023Q1

REPORT INFORMATION
  Report Type: Spontaneous
  Country: US (occurrence: US)
  Receive Date: 20230327
  Receipt Date: 20230327
  Transmission Date: 20230418
  Serious: Yes (Death, Life-Threatening, Other)
  Sender: FDA-Public Use
  Company Number: US-drreddys-LIT/USA/23/0162789

PATIENT
  Age: 59 Year
  Sex: Male

DRUGS (3)
  1. COLCHICINE [Suspect]
     Active Substance: COLCHICINE
     Indication: Myopericarditis
  2. INDOMETHACIN [Suspect]
     Active Substance: INDOMETHACIN
     Indication: Myopericarditis
  3. IMMUNE GLOBULIN NOS [Suspect]
     Active Substance: IMMUNE GLOBULIN NOS
     Indication: Myopericarditis

REACTIONS (3)
  - Cardiogenic shock [Fatal]
  - Myopericarditis [Fatal]
  - Drug ineffective for unapproved indication [Unknown]
